FAERS Safety Report 7251276-7 (Version None)
Quarter: 2011Q1

REPORT INFORMATION
  Report Type: 
  Country: None (occurrence: None)
  Receive Date: 20110119
  Receipt Date: 20110111
  Transmission Date: 20110831
  Serious: Yes (Hospitalization, Other)
  Sender: FDA-Public Use
  Company Number: DSU-2011-00255

PATIENT
  Sex: Male
  Weight: 122.4712 kg

DRUGS (4)
  1. AVANDIA (ROSIGLITAZONE) (ROSIGLITAZONE) [Concomitant]
  2. METFORMIN HCL [Concomitant]
  3. BENICAR [Suspect]
     Dosage: PER ORAL
     Route: 048
  4. SUCCINYLCHOLINE CHLORIDE [Suspect]
     Indication: ANAESTHESIA

REACTIONS (4)
  - CONTUSION [None]
  - RHABDOMYOLYSIS [None]
  - SPINAL FUSION SURGERY [None]
  - POST PROCEDURAL COMPLICATION [None]
